FAERS Safety Report 13081934 (Version 3)
Quarter: 2017Q2

REPORT INFORMATION
  Report Type: Spontaneous
  Country: SK (occurrence: SK)
  Receive Date: 20170103
  Receipt Date: 20170623
  Transmission Date: 20170830
  Serious: Yes (Other)
  Sender: FDA-Public Use
  Company Number: SK-ARIAD PHARMACEUTICALS, INC-2016SK007481

PATIENT

DRUGS (2)
  1. ICLUSIG [Suspect]
     Active Substance: PONATINIB
     Dosage: 30 MG, QD
     Route: 048
  2. ICLUSIG [Suspect]
     Active Substance: PONATINIB
     Indication: CHRONIC MYELOID LEUKAEMIA
     Dosage: 45 MG, QD
     Route: 048
     Dates: start: 201511

REACTIONS (9)
  - Abdominal pain upper [Unknown]
  - Accelerated hypertension [Unknown]
  - Headache [Unknown]
  - Insomnia [Unknown]
  - Foot deformity [Recovering/Resolving]
  - Chest pain [Recovered/Resolved]
  - Drug intolerance [Unknown]
  - Drug dose omission [Unknown]
  - Pain [Unknown]

NARRATIVE: CASE EVENT DATE: 2016
